FAERS Safety Report 16963452 (Version 1)
Quarter: 2019Q4

REPORT INFORMATION
  Report Type: Other
  Country: IT (occurrence: IT)
  Receive Date: 20191025
  Receipt Date: 20191025
  Transmission Date: 20200122
  Serious: Yes (Other)
  Sender: FDA-Public Use
  Company Number: IT-VALIDUS PHARMACEUTICALS LLC-IT-2019VAL000637

PATIENT

DRUGS (30)
  1. ROSUVASTATIN. [Suspect]
     Active Substance: ROSUVASTATIN
     Dosage: 10 MG, QD
     Route: 065
  2. RIVAROXABAN [Suspect]
     Active Substance: RIVAROXABAN
     Indication: PRODUCT USED FOR UNKNOWN INDICATION
     Dosage: 15 MG, QD
     Route: 065
  3. LEVOTHYROXINE SODIUM. [Suspect]
     Active Substance: LEVOTHYROXINE SODIUM
     Dosage: 50 MG, UNK
     Route: 065
  4. LEVOTHYROXINE SODIUM. [Suspect]
     Active Substance: LEVOTHYROXINE SODIUM
     Dosage: 100 MG, UNK
     Route: 065
  5. CARVEDILOL. [Suspect]
     Active Substance: CARVEDILOL
     Dosage: 19 MG, QD
     Route: 048
  6. CARVEDILOL. [Suspect]
     Active Substance: CARVEDILOL
     Dosage: 13 MG, QD
     Route: 048
  7. CARVEDILOL. [Suspect]
     Active Substance: CARVEDILOL
     Dosage: 37.5 MG, QD (25 MG AT THE MORNING AND 12.5 MG AT THE EVENING)
     Route: 065
  8. CARVEDILOL. [Suspect]
     Active Substance: CARVEDILOL
     Dosage: 12.5 MG, QD
     Route: 065
  9. VALSARTAN. [Suspect]
     Active Substance: VALSARTAN
     Indication: PRODUCT USED FOR UNKNOWN INDICATION
     Dosage: 320 MG, QD
     Route: 065
  10. ROSUVASTATIN. [Suspect]
     Active Substance: ROSUVASTATIN
     Indication: PRODUCT USED FOR UNKNOWN INDICATION
     Dosage: 40 MG, QD
     Route: 065
  11. IRBESARTAN. [Suspect]
     Active Substance: IRBESARTAN
     Indication: PRODUCT USED FOR UNKNOWN INDICATION
     Dosage: 150 MG, QD
     Route: 065
  12. CARVEDILOL. [Suspect]
     Active Substance: CARVEDILOL
     Dosage: 25 MG, QD
     Route: 048
  13. FUROSEMIDE SODIUM [Suspect]
     Active Substance: FUROSEMIDE SODIUM
     Indication: PRODUCT USED FOR UNKNOWN INDICATION
     Dosage: 40 MG, QD
     Route: 065
  14. FUROSEMIDE. [Suspect]
     Active Substance: FUROSEMIDE
     Indication: PRODUCT USED FOR UNKNOWN INDICATION
     Dosage: 20 MG, QD
     Route: 065
  15. SPIRONOLACTONE. [Suspect]
     Active Substance: SPIRONOLACTONE
     Dosage: 12.5 MG, UNK
     Route: 065
  16. TIOTROPIUM BROMIDE [Suspect]
     Active Substance: TIOTROPIUM BROMIDE
     Indication: PRODUCT USED FOR UNKNOWN INDICATION
     Dosage: 1 DF, QD
     Route: 065
  17. FUROSEMIDE SODIUM [Suspect]
     Active Substance: FUROSEMIDE SODIUM
     Dosage: 20 MG, QD
     Route: 065
  18. CARVEDILOL. [Suspect]
     Active Substance: CARVEDILOL
     Indication: PRODUCT USED FOR UNKNOWN INDICATION
     Dosage: 18.75 MG, QD
     Route: 065
  19. CARVEDILOL. [Suspect]
     Active Substance: CARVEDILOL
     Dosage: 6.25 MG, QD
     Route: 065
  20. CARVEDILOL. [Suspect]
     Active Substance: CARVEDILOL
     Dosage: 12.5 MG, BID
     Route: 065
  21. FUROSEMIDE. [Suspect]
     Active Substance: FUROSEMIDE
     Dosage: 40 MG, QD
     Route: 065
  22. ROSUVASTATIN. [Suspect]
     Active Substance: ROSUVASTATIN
     Dosage: 20 MG, QD
     Route: 065
  23. CARVEDILOL. [Suspect]
     Active Substance: CARVEDILOL
     Indication: PRODUCT USED FOR UNKNOWN INDICATION
     Dosage: 6 MG, QD
     Route: 065
  24. CARVEDILOL. [Suspect]
     Active Substance: CARVEDILOL
     Dosage: 50 MG, QD
     Route: 048
  25. CARVEDILOL. [Suspect]
     Active Substance: CARVEDILOL
     Dosage: 38 MG, QD
     Route: 065
  26. CARVEDILOL. [Suspect]
     Active Substance: CARVEDILOL
     Dosage: 18.75 MG, QD (12.5MG AT THE MORNING AND 6.25 AT THE EVENING)
     Route: 065
  27. SPIRONOLACTONE. [Suspect]
     Active Substance: SPIRONOLACTONE
     Indication: PRODUCT USED FOR UNKNOWN INDICATION
     Dosage: 13 MG, UNK
     Route: 065
  28. CARVEDILOL. [Suspect]
     Active Substance: CARVEDILOL
     Dosage: 25 MG, BID
     Route: 065
  29. RIVAROXABAN [Suspect]
     Active Substance: RIVAROXABAN
     Dosage: 20 MG, QD
     Route: 065
  30. LEVOTHYROXINE SODIUM. [Suspect]
     Active Substance: LEVOTHYROXINE SODIUM
     Indication: PRODUCT USED FOR UNKNOWN INDICATION
     Dosage: 25 MG, UNK
     Route: 065

REACTIONS (31)
  - Oxygen saturation increased [Unknown]
  - Blood thyroid stimulating hormone abnormal [Unknown]
  - Obstructive airways disorder [Unknown]
  - Mitral valve incompetence [Unknown]
  - Dyslipidaemia [Unknown]
  - Dyspnoea [Unknown]
  - C-reactive protein abnormal [Unknown]
  - Fractured coccyx [Unknown]
  - Aortic aneurysm [Unknown]
  - Bundle branch block left [Unknown]
  - Hypertension [Unknown]
  - Left ventricular dilatation [Unknown]
  - Goitre [Unknown]
  - N-terminal prohormone brain natriuretic peptide abnormal [Unknown]
  - Tricuspid valve incompetence [Unknown]
  - Atrial fibrillation [Unknown]
  - Brain natriuretic peptide abnormal [Unknown]
  - Cardiomegaly [Unknown]
  - Bundle branch block right [Unknown]
  - Cardiac failure chronic [Recovering/Resolving]
  - Fall [Unknown]
  - Blood pressure increased [Unknown]
  - Thyroiditis [Unknown]
  - Electrocardiogram QRS complex abnormal [Unknown]
  - Ventricular hypokinesia [Unknown]
  - Ejection fraction decreased [Unknown]
  - Pulmonary arterial pressure abnormal [Unknown]
  - Type 2 diabetes mellitus [Unknown]
  - Conduction disorder [Unknown]
  - Chronic obstructive pulmonary disease [Unknown]
  - Oedema peripheral [Unknown]

NARRATIVE: CASE EVENT DATE: 20150722
